FAERS Safety Report 6921337-8 (Version None)
Quarter: 2010Q3

REPORT INFORMATION
  Report Type: 
  Country: None (occurrence: None)
  Receive Date: 20100812
  Receipt Date: 20100730
  Transmission Date: 20110219
  Serious: Yes (Life-Threatening, Hospitalization)
  Sender: FDA-Public Use
  Company Number: US-ELI_LILLY_AND_COMPANY-US201007005626

PATIENT
  Age: 68 Year
  Sex: Female

DRUGS (7)
  1. CYMBALTA [Suspect]
     Indication: DEPRESSION
     Dosage: 20 MG, UNK
  2. CYMBALTA [Suspect]
     Dosage: 40 MG, DAILY (1/D)
     Dates: start: 20100526
  3. LASIX [Concomitant]
  4. FLECAINIDE ACETATE [Concomitant]
  5. ZOCOR [Concomitant]
  6. COZAAR [Concomitant]
  7. LEVOXYL [Concomitant]

REACTIONS (6)
  - AMNESIA [None]
  - DYSARTHRIA [None]
  - HYPERSENSITIVITY [None]
  - LETHARGY [None]
  - LIFE SUPPORT [None]
  - SOMNOLENCE [None]
